FAERS Safety Report 9411581 (Version 1)
Quarter: 2013Q3

REPORT INFORMATION
  Report Type: Spontaneous
  Country: US (occurrence: None)
  Receive Date: 20130718
  Receipt Date: 20130718
  Transmission Date: 20140515
  Serious: Yes (Hospitalization)
  Sender: FDA-Public Use
  Company Number: None

PATIENT
  Age: 78 Year
  Sex: Male
  Weight: 74.84 kg

DRUGS (2)
  1. CLOPIDOGREL BISULFATE [Suspect]
     Indication: THROMBOSIS PROPHYLAXIS
     Dosage: ONCE DAILY   GSMS
     Dates: start: 20130608, end: 20130618
  2. ATORVASTATIN CALCIUM [Suspect]
     Indication: BLOOD CHOLESTEROL
     Dosage: 1/2 TAB DAILY
     Dates: start: 20130608

REACTIONS (9)
  - Yellow skin [None]
  - Dyspnoea [None]
  - Abdominal discomfort [None]
  - Pain [None]
  - Diarrhoea [None]
  - Back pain [None]
  - Visual impairment [None]
  - Speech disorder [None]
  - Heart rate increased [None]
